FAERS Safety Report 8309027-0 (Version None)
Quarter: 2012Q2

REPORT INFORMATION
  Report Type: 
  Country: None (occurrence: None)
  Receive Date: 20120424
  Receipt Date: 20120419
  Transmission Date: 20120825
  Serious: Yes (Other)
  Sender: FDA-Public Use
  Company Number: US-ELI_LILLY_AND_COMPANY-US201204007185

PATIENT
  Age: 73 Year
  Sex: Female

DRUGS (8)
  1. HUMULIN N [Suspect]
     Indication: DIABETES MELLITUS
     Dosage: 35 U, EACH MORNING
     Dates: start: 19820101
  2. HUMULIN N [Suspect]
     Dosage: 15 U, AT NIGHT
     Dates: start: 19820101
  3. HUMULIN R [Suspect]
     Dosage: 10 U, AT NIGHT
     Dates: start: 19820101
  4. HUMULIN R [Suspect]
     Dosage: 15 U, EACH MORNING
     Dates: start: 19820101
  5. HUMULIN R [Suspect]
     Dosage: 10 U, AT NIGHT
     Dates: start: 19820101
  6. HUMULIN N [Suspect]
     Dosage: 35 U, EACH MORNING
     Dates: start: 19820101
  7. HUMULIN N [Suspect]
     Dosage: 15 U, AT NIGHT
     Dates: start: 19820101
  8. HUMULIN R [Suspect]
     Indication: DIABETES MELLITUS
     Dosage: 15 U, EACH MORNING
     Dates: start: 19820101

REACTIONS (3)
  - AGE-RELATED MACULAR DEGENERATION [None]
  - BLINDNESS [None]
  - VISUAL IMPAIRMENT [None]
